FAERS Safety Report 8519925-0 (Version None)
Quarter: 2012Q3

REPORT INFORMATION
  Report Type: 
  Country: None (occurrence: None)
  Receive Date: 20120719
  Receipt Date: 20120711
  Transmission Date: 20120928
  Serious: Yes (Other)
  Sender: FDA-Public Use
  Company Number: US-BRISTOL-MYERS SQUIBB COMPANY-16760944

PATIENT
  Age: 57 Year
  Sex: Female

DRUGS (4)
  1. ZOSYN [Suspect]
     Indication: NEOPLASM MALIGNANT
     Dates: start: 20120620
  2. CARBOPLATIN [Suspect]
     Indication: NEOPLASM MALIGNANT
     Dates: start: 20120626
  3. TAXOL [Suspect]
     Indication: NEOPLASM MALIGNANT
     Dates: start: 20120626
  4. VANCOMYCIN [Suspect]
     Indication: NEOPLASM MALIGNANT
     Dates: start: 20120629

REACTIONS (1)
  - RENAL IMPAIRMENT [None]
